FAERS Safety Report 7259116-7 (Version None)
Quarter: 2011Q1

REPORT INFORMATION
  Report Type: 
  Country: None (occurrence: None)
  Receive Date: 20110129
  Receipt Date: 20100811
  Transmission Date: 20110831
  Serious: Yes (Hospitalization)
  Sender: FDA-Public Use
  Company Number: US-ABBOTT-10P-163-0663898-00

PATIENT
  Sex: Female
  Weight: 99.88 kg

DRUGS (4)
  1. NEURONTIN [Concomitant]
     Indication: PRODUCT USED FOR UNKNOWN INDICATION
  2. HUMIRA [Suspect]
     Indication: RHEUMATOID ARTHRITIS
     Route: 058
     Dates: start: 20080101, end: 20091001
  3. PREDNISONE [Concomitant]
     Indication: PRODUCT USED FOR UNKNOWN INDICATION
  4. HUMIRA [Suspect]
     Dates: start: 20100401

REACTIONS (7)
  - PNEUMONIA [None]
  - CYSTITIS [None]
  - PYREXIA [None]
  - SINUSITIS [None]
  - HYPOAESTHESIA [None]
  - HYPOTENSION [None]
  - H1N1 INFLUENZA [None]
